FAERS Safety Report 7227509-X (Version None)
Quarter: 2011Q1

REPORT INFORMATION
  Report Type: 
  Country: None (occurrence: None)
  Receive Date: 20110114
  Receipt Date: 20110106
  Transmission Date: 20110831
  Serious: Yes (Death)
  Sender: FDA-Public Use
  Company Number: IL-ACTELION-A-CH2011-43600

PATIENT
  Age: 80 Year
  Sex: Female

DRUGS (5)
  1. ASPIRIN [Concomitant]
  2. VASODIP [Concomitant]
  3. TRACLEER [Suspect]
     Dosage: 125 MG, BID
     Route: 048
     Dates: start: 20080101
  4. CALCIUM CHANNEL BLOCKERS [Concomitant]
  5. ENALADEX [Concomitant]

REACTIONS (1)
  - ARRHYTHMIA [None]
